FAERS Safety Report 4390116-0 (Version None)
Quarter: 2004Q2

REPORT INFORMATION
  Report Type: 
  Country: None (occurrence: None)
  Receive Date: 20040630
  Receipt Date: 20040617
  Transmission Date: 20050107
  Serious: Yes (Other)
  Sender: FDA-Public Use
  Company Number: AU-JNJFOC-20040604341

PATIENT
  Age: 3 Month
  Sex: Female

DRUGS (1)
  1. PROPULSID [Suspect]
     Indication: DRUG USE FOR UNKNOWN INDICATION

REACTIONS (5)
  - ABDOMINAL PAIN UPPER [None]
  - HAIR GROWTH ABNORMAL [None]
  - MARKEDLY REDUCED DIETARY INTAKE [None]
  - OVARIAN CYST [None]
  - SCREAMING [None]
